FAERS Safety Report 17921042 (Version 1)
Quarter: 2020Q2

REPORT INFORMATION
  Report Type: Spontaneous
  Country: US (occurrence: US)
  Receive Date: 20200622
  Receipt Date: 20200622
  Transmission Date: 20200714
  Serious: Yes (Other)
  Sender: FDA-Public Use
  Company Number: US-PFIZER INC-2020236204

PATIENT

DRUGS (1)
  1. AZITHROMYCIN ANHYDROUS. [Suspect]
     Active Substance: AZITHROMYCIN ANHYDROUS
     Dosage: UNK (500 MG, TOOK TWO ON TODAY)

REACTIONS (4)
  - Chest pain [Unknown]
  - Frequent bowel movements [Unknown]
  - Haematochezia [Unknown]
  - Near death experience [Unknown]
